FAERS Safety Report 23427818 (Version 1)
Quarter: 2024Q1

REPORT INFORMATION
  Report Type: Spontaneous
  Country: FR (occurrence: FR)
  Receive Date: 20240122
  Receipt Date: 20240122
  Transmission Date: 20240409
  Serious: Yes (Hospitalization, Other)
  Sender: FDA-Public Use
  Company Number: None

PATIENT
  Age: 59 Year
  Sex: Male

DRUGS (7)
  1. ALLOPURINOL [Suspect]
     Active Substance: ALLOPURINOL
     Indication: Prophylaxis
     Dosage: 300 MILLIGRAM, QD
     Route: 048
     Dates: start: 20231110, end: 20231204
  2. ONDANSETRON [Suspect]
     Active Substance: ONDANSETRON
     Indication: Prophylaxis of nausea and vomiting
     Dosage: 16 MILLIGRAM, QD
     Route: 042
     Dates: start: 20231121, end: 20231204
  3. POSACONAZOLE [Suspect]
     Active Substance: POSACONAZOLE
     Indication: Prophylaxis
     Dosage: 600 MILLIGRAM, QD
     Route: 048
     Dates: start: 20231115, end: 20231204
  4. CYTARABINE [Suspect]
     Active Substance: CYTARABINE
     Indication: Acute myeloid leukaemia
     Dosage: 360 MILLIGRAM, QD
     Route: 042
     Dates: start: 20231121, end: 20231127
  5. DAUNORUBICIN [Suspect]
     Active Substance: DAUNORUBICIN
     Indication: Acute myeloid leukaemia
     Dosage: 160 MILLIGRAM, QD
     Route: 042
     Dates: start: 20231121, end: 20231123
  6. CEFTAZIDIME [Concomitant]
     Active Substance: CEFTAZIDIME
     Dosage: 6 GRAM, QD
     Route: 042
     Dates: start: 20231128, end: 20240104
  7. VALACYCLOVIR HYDROCHLORIDE [Concomitant]
     Active Substance: VALACYCLOVIR HYDROCHLORIDE
     Dosage: 1 GRAM, QD
     Route: 048
     Dates: start: 20231115

REACTIONS (3)
  - Neutropenic colitis [Recovered/Resolved]
  - Bilirubin conjugated increased [Recovered/Resolved]
  - Skin exfoliation [Recovered/Resolved]

NARRATIVE: CASE EVENT DATE: 20231130
